FAERS Safety Report 9678726 (Version 2)
Quarter: 2013Q4

REPORT INFORMATION
  Report Type: Spontaneous
  Country: US (occurrence: US)
  Receive Date: 20131108
  Receipt Date: 20131129
  Transmission Date: 20140711
  Serious: No
  Sender: FDA-Public Use
  Company Number: US-PFIZER INC-2013318243

PATIENT
  Sex: Female

DRUGS (3)
  1. NEURONTIN [Suspect]
     Indication: PAIN
     Dosage: UNK
  2. NEURONTIN [Suspect]
     Indication: STAPHYLOCOCCAL INFECTION
  3. NEURONTIN [Suspect]
     Indication: NEUROPATHY PERIPHERAL

REACTIONS (3)
  - Off label use [Unknown]
  - Therapeutic response unexpected [Unknown]
  - Drug ineffective for unapproved indication [Unknown]
